FAERS Safety Report 25317919 (Version 1)
Quarter: 2025Q2

REPORT INFORMATION
  Report Type: Report from Study
  Country: US (occurrence: US)
  Receive Date: 20250515
  Receipt Date: 20250515
  Transmission Date: 20250717
  Serious: Yes (Other)
  Sender: ABBVIE
  Company Number: US-ABBVIE-5983626

PATIENT
  Age: 51 Year
  Sex: Male
  Weight: 68.038 kg

DRUGS (11)
  1. HUMIRA [Suspect]
     Active Substance: ADALIMUMAB
     Indication: Ankylosing spondylitis
     Route: 058
     Dates: start: 2015, end: 2019
  2. HUMIRA [Suspect]
     Active Substance: ADALIMUMAB
     Route: 058
     Dates: start: 202204
  3. HUMIRA [Suspect]
     Active Substance: ADALIMUMAB
     Route: 058
     Dates: start: 2022
  4. HUMIRA [Suspect]
     Active Substance: ADALIMUMAB
     Route: 058
     Dates: start: 202204
  5. LEXAPRO [Concomitant]
     Active Substance: ESCITALOPRAM OXALATE
     Indication: Anxiety
  6. VALIUM [Concomitant]
     Active Substance: DIAZEPAM
     Indication: Muscle spasms
  7. LISINOPRIL [Concomitant]
     Active Substance: LISINOPRIL
     Indication: Hypertension
  8. BUDESONIDE [Concomitant]
     Active Substance: BUDESONIDE
     Indication: Skin disorder
  9. OXYCODONE [Concomitant]
     Active Substance: OXYCODONE
     Indication: Pain
  10. CLOBETASOL [Concomitant]
     Active Substance: CLOBETASOL
     Indication: Skin disorder
  11. MELOXICAM [Concomitant]
     Active Substance: MELOXICAM
     Indication: Antiinflammatory therapy

REACTIONS (15)
  - Shoulder fracture [Not Recovered/Not Resolved]
  - Psoriasis [Recovering/Resolving]
  - Arthralgia [Not Recovered/Not Resolved]
  - Arthralgia [Recovered/Resolved]
  - Hypersomnia [Unknown]
  - Fatigue [Not Recovered/Not Resolved]
  - Cough [Unknown]
  - Fall [Recovered/Resolved]
  - Rash papular [Unknown]
  - Malaise [Recovering/Resolving]
  - Arthralgia [Recovering/Resolving]
  - Stress [Unknown]
  - Pneumonia [Recovered/Resolved]
  - Localised infection [Recovered/Resolved]
  - Pain [Recovering/Resolving]

NARRATIVE: CASE EVENT DATE: 20150101
